FAERS Safety Report 7770622-9 (Version None)
Quarter: 2011Q3

REPORT INFORMATION
  Report Type: 
  Country: None (occurrence: None)
  Receive Date: 20110922
  Receipt Date: 20110907
  Transmission Date: 20111222
  Serious: Yes (Disabling, Other)
  Sender: FDA-Public Use
  Company Number: PHHY2011JP80471

PATIENT
  Sex: Female
  Weight: 63 kg

DRUGS (20)
  1. ALDACTONE [Concomitant]
     Indication: HYPERTENSION
     Dosage: 50 MG, UNK
     Route: 048
     Dates: start: 20080318, end: 20090804
  2. AMLODIN OD [Concomitant]
     Indication: HYPERTENSION
     Dosage: 5 MG, UNK
     Route: 048
     Dates: start: 20090714
  3. AMARYL [Concomitant]
     Dosage: 3 MG, UNK
     Route: 048
  4. AMARYL [Concomitant]
     Dosage: 4 MG, UNK
     Dates: end: 20090804
  5. DIOVAN [Suspect]
     Dosage: 160 MG, ONCE DAILY
     Route: 048
     Dates: start: 20080520, end: 20090804
  6. TRICHLORMETHIAZIDE [Concomitant]
     Indication: HYPERTENSION
     Dosage: 2 MG, UNK
     Route: 048
     Dates: start: 20080520, end: 20090426
  7. DIART [Concomitant]
     Indication: HYPERTENSION
     Dosage: 120 MG
     Route: 048
     Dates: start: 20080311, end: 20090426
  8. MICARDIS [Concomitant]
     Indication: HYPERTENSION
     Dosage: 40 MG, UNK
     Route: 048
     Dates: start: 20090710
  9. LASIX [Concomitant]
     Indication: HYPERTENSION
     Dosage: 40 MG, UNK
     Route: 048
     Dates: start: 20090710
  10. FERROUS CITRATE [Concomitant]
     Dosage: 200 MG, UNK
     Route: 048
     Dates: start: 20080422, end: 20080929
  11. DIOVAN [Suspect]
     Dosage: 40 MG, ONCE DAILY
     Route: 048
     Dates: start: 20080325, end: 20080407
  12. DIOVAN [Suspect]
     Dosage: 80 MG, UNK
     Route: 048
     Dates: start: 20080408, end: 20080519
  13. SELBEX [Concomitant]
     Dosage: 200 MG, UNK
     Route: 048
     Dates: start: 20080422, end: 20080929
  14. METFORMIN HCL [Concomitant]
     Dosage: 500 MG, UNK
     Route: 048
     Dates: start: 20080408, end: 20090804
  15. AMARYL [Concomitant]
     Dosage: 1 MG, UNK
     Route: 048
     Dates: start: 20080311
  16. MIGLITOL [Concomitant]
     Dosage: 150 MG, UNK
     Route: 048
     Dates: start: 20081209, end: 20090804
  17. DIOVAN [Suspect]
     Indication: HYPERTENSION
     Dosage: 20 MG, ONCE DAILY
     Route: 048
     Dates: start: 20080311, end: 20080324
  18. POTASSIUM CHLORIDE [Concomitant]
     Dosage: 1800 MG, UNK
     Route: 048
     Dates: start: 20080930, end: 20090804
  19. PROTECADIN [Concomitant]
     Dosage: 20 MG, UNK
     Route: 048
     Dates: start: 20090710
  20. AMARYL [Concomitant]
     Dosage: 2 MG, UNK
     Route: 048

REACTIONS (6)
  - CARDIAC FAILURE [None]
  - BLOOD UREA INCREASED [None]
  - RENAL IMPAIRMENT [None]
  - BLOOD CREATININE INCREASED [None]
  - PROTEIN URINE PRESENT [None]
  - DRUG INEFFECTIVE [None]
